FAERS Safety Report 14817344 (Version 1)
Quarter: 2018Q2

REPORT INFORMATION
  Report Type: Spontaneous
  Country: None (occurrence: FR)
  Receive Date: 20180426
  Receipt Date: 20180426
  Transmission Date: 20180711
  Serious: Yes (Hospitalization)
  Sender: FDA-Public Use
  Company Number: FR-FRESENIUS KABI-FK201804740

PATIENT
  Age: 55 Year
  Sex: Female
  Weight: 91 kg

DRUGS (5)
  1. PACLITAXEL 6MG/ML CONCENTRATE FOR SOLUTION FOR INFUSION [Suspect]
     Active Substance: PACLITAXEL
     Indication: INTRADUCTAL PROLIFERATIVE BREAST LESION
     Route: 041
     Dates: start: 20180320, end: 20180320
  2. KEYTRUDA [Suspect]
     Active Substance: PEMBROLIZUMAB
     Indication: INTRADUCTAL PROLIFERATIVE BREAST LESION
     Route: 041
     Dates: start: 20180320, end: 20180320
  3. METHYLPREDNISOLONE. [Concomitant]
     Active Substance: METHYLPREDNISOLONE
     Indication: PREMEDICATION
     Route: 040
     Dates: start: 20180320, end: 20180320
  4. RANITIDINE (CHLORHYDRATE DE) [Concomitant]
     Indication: PREMEDICATION
     Route: 040
     Dates: start: 20180320, end: 20180320
  5. DEXCHLORPHENIRAMINE (MALEATE DE) [Concomitant]
     Indication: PREMEDICATION
     Route: 040
     Dates: start: 20180320, end: 20180320

REACTIONS (5)
  - Pruritus [Recovered/Resolved]
  - Hot flush [Recovered/Resolved]
  - Sense of oppression [Recovered/Resolved]
  - Dyspnoea [Recovered/Resolved]
  - Infusion related reaction [Recovered/Resolved]

NARRATIVE: CASE EVENT DATE: 20180320
